FAERS Safety Report 9112797 (Version 1)
Quarter: 2013Q1

REPORT INFORMATION
  Report Type: Report from Study
  Country: KR (occurrence: KR)
  Receive Date: 20130211
  Receipt Date: 20130211
  Transmission Date: 20140127
  Serious: Yes (Death)
  Sender: FDA-Public Use
  Company Number: KR-SANOFI-AVENTIS-2013SA009697

PATIENT
  Age: 69 Year
  Sex: Female

DRUGS (8)
  1. OXALIPLATIN [Suspect]
     Indication: COLORECTAL CANCER
     Route: 065
     Dates: start: 20110510, end: 20110520
  2. FLUOROURACIL [Suspect]
     Indication: COLORECTAL CANCER
     Route: 065
     Dates: start: 20110510, end: 20110520
  3. FOLINIC ACID [Suspect]
     Indication: COLORECTAL CANCER
     Route: 065
     Dates: start: 20111205, end: 20111220
  4. FOLINIC ACID [Suspect]
     Indication: COLORECTAL CANCER
     Route: 065
     Dates: start: 20110510, end: 20110520
  5. FOLINIC ACID [Concomitant]
     Dates: start: 20111205, end: 20111220
  6. IRINOTECAN [Concomitant]
     Dates: start: 20111205, end: 20111220
  7. FLUOROURACIL [Concomitant]
     Dates: start: 20111205, end: 20111220
  8. XELODA [Concomitant]
     Dates: start: 20120202, end: 20120224

REACTIONS (1)
  - Death [Fatal]
